FAERS Safety Report 10874160 (Version 7)
Quarter: 2017Q1

REPORT INFORMATION
  Report Type: Spontaneous
  Country: TR (occurrence: TR)
  Receive Date: 20150227
  Receipt Date: 20170228
  Transmission Date: 20170428
  Serious: Yes (Hospitalization, Other)
  Sender: FDA-Public Use
  Company Number: TR-ABBVIE-15K-161-1352301-00

PATIENT
  Age: 37 Year
  Sex: Male
  Weight: 85 kg

DRUGS (2)
  1. ISOVIT [Concomitant]
     Indication: LATENT TUBERCULOSIS
     Dates: start: 201312, end: 201406
  2. HUMIRA [Suspect]
     Active Substance: ADALIMUMAB
     Indication: PSORIATIC ARTHROPATHY
     Route: 058
     Dates: start: 201401, end: 20141215

REACTIONS (13)
  - Fatigue [Recovered/Resolved]
  - Tuberculosis of central nervous system [Recovering/Resolving]
  - Nasopharyngitis [Recovered/Resolved]
  - Pyrexia [Recovered/Resolved]
  - Multiple sclerosis [Recovered/Resolved]
  - Central nervous system lesion [Recovering/Resolving]
  - Brain neoplasm [Not Recovered/Not Resolved]
  - Decreased appetite [Recovered/Resolved]
  - Ageusia [Recovering/Resolving]
  - Night sweats [Recovered/Resolved]
  - Tremor [Recovered/Resolved]
  - Productive cough [Recovered/Resolved]
  - Hypoaesthesia [Recovered/Resolved]

NARRATIVE: CASE EVENT DATE: 2014
